FAERS Safety Report 11494610 (Version 1)
Quarter: 2015Q3

REPORT INFORMATION
  Report Type: Spontaneous
  Country: US (occurrence: US)
  Receive Date: 20150911
  Receipt Date: 20150911
  Transmission Date: 20151125
  Serious: Yes (Death, Hospitalization)
  Sender: FDA-Public Use
  Company Number: US-HORIZON-PRE-0144-2015

PATIENT
  Age: 60 Year
  Sex: Male

DRUGS (5)
  1. ALEMTUZUMAB [Suspect]
     Active Substance: ALEMTUZUMAB
     Indication: IMMUNOSUPPRESSION
     Dates: start: 201205
  2. THYMOGLOBULIN [Suspect]
     Active Substance: LAPINE T-LYMPHOCYTE IMMUNE GLOBULIN
     Indication: IMMUNOSUPPRESSION
     Dates: start: 201212
  3. TACROLIMUS. [Suspect]
     Active Substance: TACROLIMUS
     Indication: IMMUNOSUPPRESSION
     Dates: start: 201212
  4. MYCOPHENOLATE [Suspect]
     Active Substance: MYCOPHENOLIC ACID
     Indication: IMMUNOSUPPRESSION
     Dates: start: 201212
  5. PREDNISONE. [Suspect]
     Active Substance: PREDNISONE
     Indication: IMMUNOSUPPRESSION
     Dates: start: 201212

REACTIONS (11)
  - Fungal infection [Fatal]
  - Hypogammaglobulinaemia [None]
  - Pneumonia cytomegaloviral [Fatal]
  - Drug resistance [None]
  - Lymphopenia [None]
  - Gene mutation [None]
  - Aspergillus test positive [None]
  - Pulmonary mass [None]
  - H1N1 influenza [Fatal]
  - Pancreas transplant [None]
  - Infection in an immunocompromised host [None]

NARRATIVE: CASE EVENT DATE: 2013
